FAERS Safety Report 6710725-0 (Version None)
Quarter: 2010Q2

REPORT INFORMATION
  Report Type: 
  Country: None (occurrence: None)
  Receive Date: 20100504
  Receipt Date: 20100504
  Transmission Date: 20101027
  Serious: Yes (Other)
  Sender: FDA-Public Use
  Company Number: None

PATIENT
  Age: 63 Year
  Sex: Male

DRUGS (1)
  1. SUMATRIPTAN SUCCINATE [Suspect]
     Indication: MIGRAINE
     Dosage: 100MG ONCE @ ONSET AND REPEAT 2 HOURS LATER PO
     Route: 048
     Dates: start: 20091216

REACTIONS (1)
  - THERAPEUTIC RESPONSE DECREASED [None]
